FAERS Safety Report 6163829-8 (Version None)
Quarter: 2009Q2

REPORT INFORMATION
  Report Type: 
  Country: None (occurrence: None)
  Receive Date: 20090422
  Receipt Date: 20090311
  Transmission Date: 20091009
  Serious: No
  Sender: FDA-Public Use
  Company Number: US-BAYER-200910803BCC

PATIENT
  Age: 58 Year
  Sex: Male

DRUGS (1)
  1. ALEVE [Suspect]
     Indication: ANALGESIA
     Dosage: TOTAL DAILY DOSE: 880 MG  UNIT DOSE: 220 MG
     Route: 048
     Dates: start: 20090310, end: 20090310

REACTIONS (3)
  - FLUSHING [None]
  - PRURITUS [None]
  - TREMOR [None]
